FAERS Safety Report 19495079 (Version 2)
Quarter: 2021Q3

REPORT INFORMATION
  Report Type: Report from Study
  Country: None (occurrence: CA)
  Receive Date: 20210705
  Receipt Date: 20210714
  Transmission Date: 20211014
  Serious: No
  Sender: FDA-Public Use
  Company Number: CA-ABBVIE-20K-028-3400843-00

PATIENT
  Sex: Female

DRUGS (13)
  1. CARBAMAZEPINE. [Suspect]
     Active Substance: CARBAMAZEPINE
     Indication: PRODUCT USED FOR UNKNOWN INDICATION
     Route: 065
  2. RINVOQ [Suspect]
     Active Substance: UPADACITINIB
     Route: 048
  3. RINVOQ [Suspect]
     Active Substance: UPADACITINIB
     Route: 048
  4. TOPIRAMATE. [Suspect]
     Active Substance: TOPIRAMATE
     Route: 065
     Dates: start: 2020
  5. RINVOQ [Suspect]
     Active Substance: UPADACITINIB
     Route: 048
     Dates: start: 20210309
  6. LYRICA [Concomitant]
     Active Substance: PREGABALIN
     Indication: NEURALGIA
  7. VITAMIN B [Concomitant]
     Active Substance: VITAMIN B
     Indication: PRODUCT USED FOR UNKNOWN INDICATION
  8. RINVOQ [Suspect]
     Active Substance: UPADACITINIB
     Route: 048
  9. TOPIRAMATE. [Suspect]
     Active Substance: TOPIRAMATE
     Indication: PRODUCT USED FOR UNKNOWN INDICATION
     Route: 065
     Dates: start: 20200601, end: 2020
  10. LYRICA [Concomitant]
     Active Substance: PREGABALIN
     Dosage: DOSE UPPED
  11. RINVOQ [Suspect]
     Active Substance: UPADACITINIB
     Indication: RHEUMATOID ARTHRITIS
     Route: 048
     Dates: start: 2020
  12. RINVOQ [Suspect]
     Active Substance: UPADACITINIB
     Route: 048
     Dates: end: 20210215
  13. PREDNISONE. [Concomitant]
     Active Substance: PREDNISONE
     Indication: PRODUCT USED FOR UNKNOWN INDICATION
     Dates: end: 2020

REACTIONS (29)
  - Peripheral swelling [Unknown]
  - Weight increased [Unknown]
  - Memory impairment [Unknown]
  - Arthralgia [Unknown]
  - Swelling [Recovering/Resolving]
  - Unevaluable event [Unknown]
  - Musculoskeletal discomfort [Unknown]
  - Arthropathy [Unknown]
  - Somnolence [Unknown]
  - Drug ineffective [Unknown]
  - Malaise [Recovering/Resolving]
  - Asthenia [Unknown]
  - Drug ineffective [Unknown]
  - Mobility decreased [Unknown]
  - Back pain [Not Recovered/Not Resolved]
  - Sciatic nerve neuropathy [Recovering/Resolving]
  - Poor quality sleep [Unknown]
  - Neuralgia [Not Recovered/Not Resolved]
  - Weight abnormal [Unknown]
  - Peripheral swelling [Unknown]
  - Joint dislocation [Unknown]
  - Rosacea [Unknown]
  - Muscular weakness [Unknown]
  - Drug interaction [Unknown]
  - Myalgia [Unknown]
  - Unevaluable event [Unknown]
  - Apathy [Unknown]
  - Rheumatoid arthritis [Unknown]
  - Limb discomfort [Unknown]

NARRATIVE: CASE EVENT DATE: 2020
